FAERS Safety Report 5478965-9 (Version None)
Quarter: 2007Q4

REPORT INFORMATION
  Report Type: 
  Country: None (occurrence: None)
  Receive Date: 20071006
  Receipt Date: 20070925
  Transmission Date: 20080405
  Serious: Yes (Hospitalization)
  Sender: FDA-Public Use
  Company Number: BE-PFIZER INC-2007069117

PATIENT
  Sex: Female
  Weight: 66.5 kg

DRUGS (9)
  1. SU-011,248 [Suspect]
     Indication: BREAST CANCER
     Route: 048
  2. CAPECITABINE [Suspect]
     Indication: BREAST CANCER
     Route: 048
  3. NORMACOL [Concomitant]
     Route: 048
     Dates: start: 20051220, end: 20070818
  4. PROZAC [Concomitant]
     Route: 048
  5. DAFALGAN [Concomitant]
     Route: 048
     Dates: start: 20060113, end: 20070814
  6. BROMAZEPAM [Concomitant]
     Route: 048
  7. LORAMET [Concomitant]
     Route: 048
  8. CONTRAMAL [Concomitant]
     Route: 048
  9. LACRYSTAT [Concomitant]
     Route: 061

REACTIONS (5)
  - ANOREXIA [None]
  - DYSPHAGIA [None]
  - FATIGUE [None]
  - MALAISE [None]
  - NAUSEA [None]
